FAERS Safety Report 10356752 (Version 1)
Quarter: 2014Q3

REPORT INFORMATION
  Report Type: Spontaneous
  Country: IE (occurrence: CH)
  Receive Date: 20140801
  Receipt Date: 20140801
  Transmission Date: 20150326
  Serious: Yes (Hospitalization)
  Sender: FDA-Public Use
  Company Number: 2014SP004395

PATIENT
  Age: 67 Year
  Sex: Male

DRUGS (19)
  1. OXYNORM [Concomitant]
     Active Substance: OXYCODONE HYDROCHLORIDE
     Dates: start: 20140528, end: 20140529
  2. AMOXICILLIN TRIHYDRATE W/CLAVULANATE POTASS. [Suspect]
     Active Substance: AMOXICILLIN\CLAVULANATE POTASSIUM
     Indication: SEPTIC ARTHRITIS STAPHYLOCOCCAL
     Route: 040
     Dates: start: 20140524, end: 20140604
  3. VENLAFAXINE [Concomitant]
     Active Substance: VENLAFAXINE HYDROCHLORIDE
  4. CLEXANE [Concomitant]
     Active Substance: ENOXAPARIN SODIUM
     Dates: start: 20140525
  5. CUBICINE [Concomitant]
     Dates: start: 20140612
  6. SIFROL [Concomitant]
     Active Substance: PRAMIPEXOLE
  7. GENTAMYCINE [Concomitant]
     Active Substance: GENTAMICIN
     Dates: start: 20140528, end: 20140623
  8. VANCOMYCIN [Suspect]
     Active Substance: VANCOMYCIN
     Indication: SEPTIC ARTHRITIS STAPHYLOCOCCAL
     Route: 040
     Dates: start: 20140605, end: 20140608
  9. TOBRAMYCIN [Concomitant]
     Active Substance: TOBRAMYCIN
     Dates: start: 20140528, end: 20140623
  10. DIAMICRON [Concomitant]
     Active Substance: GLICLAZIDE
  11. METFORMIN HYDROCHLORIDE. [Concomitant]
     Active Substance: METFORMIN HYDROCHLORIDE
  12. DIOVAN [Concomitant]
     Active Substance: VALSARTAN
  13. VANCOMYCIN [Suspect]
     Active Substance: VANCOMYCIN
     Indication: SEPTIC ARTHRITIS STAPHYLOCOCCAL
     Route: 040
     Dates: start: 20140608, end: 20140611
  14. VANCOMYCIN [Suspect]
     Active Substance: VANCOMYCIN
     Indication: SEPTIC ARTHRITIS STAPHYLOCOCCAL
     Route: 040
     Dates: start: 20140528, end: 20140531
  15. ESOMEPRAZOLE [Suspect]
     Active Substance: ESOMEPRAZOLE
     Indication: PRODUCT USED FOR UNKNOWN INDICATION
     Route: 048
     Dates: start: 20140526, end: 20140608
  16. IRFEN [Concomitant]
     Active Substance: IBUPROFEN
     Dates: start: 201405
  17. VANCOMYCIN [Suspect]
     Active Substance: VANCOMYCIN
     Indication: SEPTIC ARTHRITIS STAPHYLOCOCCAL
     Route: 040
     Dates: start: 20140531, end: 20140605
  18. TOLPERISONE [Suspect]
     Active Substance: TOLPERISONE
     Indication: PRODUCT USED FOR UNKNOWN INDICATION
     Route: 048
     Dates: start: 20140605, end: 20140612
  19. PERFALGAN [Concomitant]
     Active Substance: ACETAMINOPHEN
     Dates: start: 20140525, end: 20140530

REACTIONS (3)
  - Febrile neutropenia [Recovered/Resolved]
  - White blood cell count decreased [Recovered/Resolved]
  - Granulocytopenia [Recovered/Resolved]

NARRATIVE: CASE EVENT DATE: 20140610
